FAERS Safety Report 4473723-6 (Version None)
Quarter: 2004Q4

REPORT INFORMATION
  Report Type: 
  Country: None (occurrence: None)
  Receive Date: 20040909
  Receipt Date: 20040409
  Transmission Date: 20050328
  Serious: Yes (Hospitalization)
  Sender: FDA-Public Use
  Company Number: APP200400387

PATIENT
  Age: 31 Year
  Sex: Female
  Weight: 92.9874 kg

DRUGS (6)
  1. OXYTOCIN [Suspect]
     Indication: LABOUR INDUCTION
     Dosage: 10 USP UNITS (10 USP UNITS), INTRAVENOS
     Route: 042
     Dates: start: 20040401, end: 20040401
  2. PROSTAGLANDIN GEL [Concomitant]
  3. STADOL [Concomitant]
  4. MORPHINE SULFATE [Concomitant]
  5. KONDREMUL (MINERAL OIL EMULSION) [Concomitant]
  6. COLACE (DOCUSATE SODIUM) [Concomitant]

REACTIONS (1)
  - DRUG INEFFECTIVE [None]
